FAERS Safety Report 9526604 (Version 1)
Quarter: 2013Q3

REPORT INFORMATION
  Report Type: Spontaneous
  Country: CN (occurrence: CN)
  Receive Date: 20130916
  Receipt Date: 20130916
  Transmission Date: 20140515
  Serious: Yes (Other)
  Sender: FDA-Public Use
  Company Number: PHHY2013CN099662

PATIENT
  Age: 63 Year
  Sex: Female

DRUGS (2)
  1. CISPLATIN [Suspect]
     Indication: GASTROOESOPHAGEAL CANCER
  2. 5-FLUOROURACIL [Suspect]
     Indication: GASTROOESOPHAGEAL CANCER

REACTIONS (1)
  - Gastrointestinal disorder [Unknown]
